FAERS Safety Report 5774016-7 (Version None)
Quarter: 2008Q2

REPORT INFORMATION
  Report Type: 
  Country: None (occurrence: None)
  Receive Date: 20080616
  Receipt Date: 20080604
  Transmission Date: 20081010
  Serious: Yes (Death, Hospitalization)
  Sender: FDA-Public Use
  Company Number: CN-ROCHE-566771

PATIENT
  Age: 68 Year
  Sex: Female
  Weight: 55 kg

DRUGS (2)
  1. PEGASYS [Suspect]
     Indication: HEPATITIS C
     Route: 058
     Dates: start: 20071201, end: 20080508
  2. PEGASYS [Suspect]
     Route: 058
     Dates: start: 20070501, end: 20071201

REACTIONS (3)
  - APLASTIC ANAEMIA [None]
  - HAEMATOCHEZIA [None]
  - PLATELET COUNT DECREASED [None]
